FAERS Safety Report 5278616-2 (Version None)
Quarter: 2007Q1

REPORT INFORMATION
  Report Type: 
  Country: None (occurrence: None)
  Receive Date: 20070328
  Receipt Date: 20070323
  Transmission Date: 20070707
  Serious: Yes (Hospitalization)
  Sender: FDA-Public Use
  Company Number: IT-GLAXOSMITHKLINE-B0463801A

PATIENT
  Age: 80 Year
  Sex: Male

DRUGS (6)
  1. MALARONE [Suspect]
     Indication: MALARIA PROPHYLAXIS
     Route: 048
     Dates: start: 20070210, end: 20070217
  2. ALLOPURINOL [Concomitant]
     Dosage: 100MG PER DAY
     Route: 048
  3. LANOXIN [Concomitant]
     Dosage: .125MG PER DAY
     Route: 048
  4. ENAPREN [Concomitant]
     Dosage: 5MG PER DAY
     Route: 048
  5. TORSEMIDE [Concomitant]
     Dosage: 10MG PER DAY
     Route: 048
  6. COUMADIN [Concomitant]
     Dosage: 2.5MG PER DAY
     Route: 048

REACTIONS (3)
  - IRON DEFICIENCY ANAEMIA [None]
  - MELAENA [None]
  - STOMATITIS [None]
